FAERS Safety Report 7665653 (Version 2)
Quarter: 2013Q1

REPORT INFORMATION
  Report Type: Spontaneous
  Country: US (occurrence: US)
  Receive Date: 20101112
  Receipt Date: 20130103
  Transmission Date: 20140127
  Serious: Yes (Hospitalization, Other)
  Sender: FDA-Public Use
  Company Number: US-PFIZER INC-2010139829

PATIENT
  Age: 59 Year
  Sex: Male
  Weight: 79 kg

DRUGS (10)
  1. DILANTIN-125 [Suspect]
     Indication: CONVULSION
     Dosage: UNK
     Dates: start: 200809
  2. DILANTIN [Suspect]
     Indication: CONVULSION
     Dosage: 1000 MG, 1X/DAY
     Route: 042
     Dates: start: 20080924
  3. DILANTIN [Suspect]
     Dosage: 100 MG, 3X/DAY
     Route: 042
     Dates: start: 20080924, end: 20080928
  4. CEFAZOLIN [Concomitant]
     Dosage: 1000 MG, 3X/DAY
     Route: 042
     Dates: start: 20080918, end: 20080919
  5. COLACE [Concomitant]
     Dosage: 100 MG, 2X/DAY
     Route: 048
     Dates: start: 20080918, end: 20080922
  6. TYLENOL [Concomitant]
     Indication: PAIN
     Dosage: 650 MG, UNK
     Route: 048
     Dates: start: 20080919, end: 20080922
  7. TYLENOL [Concomitant]
     Indication: PYREXIA
  8. HYDROCHLOROTHIAZIDE [Concomitant]
     Dosage: 25 MG, UNK
     Route: 048
     Dates: start: 20080919, end: 20080923
  9. DULCOLAX [Concomitant]
     Dosage: 10 MG, UNK
     Route: 054
     Dates: start: 20080921
  10. ATIVAN [Concomitant]
     Dosage: 0.5 MG, 1X/DAY
     Route: 042
     Dates: start: 20080923

REACTIONS (1)
  - Stevens-Johnson syndrome [Unknown]
